FAERS Safety Report 8197420-9 (Version None)
Quarter: 2012Q1

REPORT INFORMATION
  Report Type: 
  Country: None (occurrence: None)
  Receive Date: 20120309
  Receipt Date: 20120228
  Transmission Date: 20120608
  Serious: Yes (Hospitalization)
  Sender: FDA-Public Use
  Company Number: FR-JNJFOC-20120213620

PATIENT
  Sex: Male

DRUGS (12)
  1. COZAAR [Suspect]
     Indication: HYPERTENSION
     Route: 048
  2. ALFUZOSIN HCL [Suspect]
     Indication: BENIGN PROSTATIC HYPERPLASIA
     Route: 048
  3. RISPERDAL [Suspect]
     Indication: AGITATION
     Route: 048
  4. RISPERDAL [Suspect]
     Route: 048
  5. ATARAX [Suspect]
     Route: 048
     Dates: start: 20120126
  6. MODOPAR [Suspect]
     Indication: EXTRAPYRAMIDAL DISORDER
     Route: 048
  7. RABEPRAZOLE SODIUM [Suspect]
     Indication: PRODUCT USED FOR UNKNOWN INDICATION
     Route: 048
  8. EQUANIL [Suspect]
     Indication: ANXIETY
     Route: 048
     Dates: start: 20100329
  9. EQUANIL [Suspect]
     Route: 048
     Dates: start: 20111128, end: 20120110
  10. ATARAX [Suspect]
     Indication: ANXIETY
     Route: 048
     Dates: start: 20111220
  11. XANAX [Suspect]
     Indication: ANXIETY
     Route: 048
     Dates: end: 20111229
  12. EXELON [Suspect]
     Indication: MEMORY IMPAIRMENT
     Route: 048
     Dates: start: 20100329, end: 20111229

REACTIONS (7)
  - MALAISE [None]
  - NEURODEGENERATIVE DISORDER [None]
  - PULMONARY EMBOLISM [None]
  - HYPERKALAEMIA [None]
  - DEHYDRATION [None]
  - CONFUSIONAL STATE [None]
  - HYPERNATRAEMIA [None]
